FAERS Safety Report 9336773 (Version 1)
Quarter: 2013Q2

REPORT INFORMATION
  Report Type: Spontaneous
  Country: US (occurrence: US)
  Receive Date: 20130607
  Receipt Date: 20130607
  Transmission Date: 20140414
  Serious: Yes (Hospitalization)
  Sender: FDA-Public Use
  Company Number: PHEH2013US012247

PATIENT
  Sex: Female

DRUGS (3)
  1. TEGRETOL-XR [Suspect]
     Dosage: 400 MG, UNK
  2. TEGRETOL-XR [Suspect]
     Dosage: 800 MG, UNK
  3. ZYPREXA [Concomitant]
     Dosage: 7.5 MG, UNK

REACTIONS (3)
  - Psychotic disorder [Unknown]
  - Muscle twitching [Unknown]
  - Depression [Unknown]
